FAERS Safety Report 7082610-9 (Version None)
Quarter: 2010Q4

REPORT INFORMATION
  Report Type: 
  Country: None (occurrence: None)
  Receive Date: 20101026
  Receipt Date: 20101008
  Transmission Date: 20110411
  Serious: Yes (Other)
  Sender: FDA-Public Use
  Company Number: 20100492

PATIENT
  Age: 99 Year
  Sex: Female

DRUGS (3)
  1. VENOFER [Suspect]
     Indication: ANAEMIA
     Dosage: 100 MG INTRAVENOUS
     Route: 042
     Dates: start: 20091008, end: 20091008
  2. ASPIRIN [Concomitant]
  3. LOVENOX (SODIUM ENOXAPARIN) [Concomitant]

REACTIONS (2)
  - INJECTION SITE ERYTHEMA [None]
  - VENOUS THROMBOSIS LIMB [None]
